FAERS Safety Report 20879556 (Version 1)
Quarter: 2022Q2

REPORT INFORMATION
  Report Type: Spontaneous
  Country: NO (occurrence: NO)
  Receive Date: 20220526
  Receipt Date: 20220526
  Transmission Date: 20220721
  Serious: Yes (Hospitalization)
  Sender: FDA-Public Use
  Company Number: None

PATIENT
  Age: 32 Year
  Sex: Female

DRUGS (2)
  1. ZOLOFT [Suspect]
     Active Substance: SERTRALINE HYDROCHLORIDE
     Indication: Depression
     Dosage: 50 MG, 1X/DAY
     Route: 048
     Dates: start: 20220426, end: 20220430
  2. OZEMPIC [Concomitant]
     Active Substance: SEMAGLUTIDE
     Indication: Overweight
     Dosage: 0.5 MG, WEEKLY
     Dates: start: 202110

REACTIONS (8)
  - Joint dislocation [Recovering/Resolving]
  - Trismus [Recovering/Resolving]
  - Pain in jaw [Not Recovered/Not Resolved]
  - Eyelid function disorder [Unknown]
  - Headache [Not Recovered/Not Resolved]
  - Trismus [Recovering/Resolving]
  - Chills [Unknown]
  - Pain [Unknown]

NARRATIVE: CASE EVENT DATE: 20220429
